FAERS Safety Report 22191070 (Version 2)
Quarter: 2023Q2

REPORT INFORMATION
  Report Type: Spontaneous
  Country: US (occurrence: US)
  Receive Date: 20230410
  Receipt Date: 20230412
  Transmission Date: 20230722
  Serious: No
  Sender: FDA-Public Use
  Company Number: US-GSKCCFUS-Case-01667955_AE-94155

PATIENT
  Age: 95 Year
  Sex: Female

DRUGS (1)
  1. TRELEGY ELLIPTA [Suspect]
     Active Substance: FLUTICASONE FUROATE\UMECLIDINIUM BROMIDE\VILANTEROL TRIFENATATE
     Indication: Product used for unknown indication
     Dosage: 1 PUFF(S), QD(100/62.5/25 MCG)

REACTIONS (1)
  - Headache [Unknown]

NARRATIVE: CASE EVENT DATE: 20230301
